FAERS Safety Report 15668710 (Version 1)
Quarter: 2018Q4

REPORT INFORMATION
  Report Type: Spontaneous
  Country: US (occurrence: US)
  Receive Date: 20181129
  Receipt Date: 20181129
  Transmission Date: 20190205
  Serious: Yes (Other)
  Sender: FDA-Public Use
  Company Number: US-ASTELLAS-2018US045020

PATIENT
  Sex: Male

DRUGS (1)
  1. MYRBETRIQ [Suspect]
     Active Substance: MIRABEGRON
     Indication: PRODUCT USED FOR UNKNOWN INDICATION
     Dosage: 25 MG, ONCE DAILY (3 DOSES)
     Route: 065
     Dates: start: 20181009, end: 20181011

REACTIONS (6)
  - Influenza [Recovering/Resolving]
  - Headache [Recovering/Resolving]
  - Subdural haematoma [Recovering/Resolving]
  - Dysphonia [Not Recovered/Not Resolved]
  - Drug ineffective [Recovering/Resolving]
  - Nasopharyngitis [Recovering/Resolving]

NARRATIVE: CASE EVENT DATE: 201810
